FAERS Safety Report 20438592 (Version 1)
Quarter: 2022Q1

REPORT INFORMATION
  Report Type: Spontaneous
  Country: NL (occurrence: NL)
  Receive Date: 20220207
  Receipt Date: 20220207
  Transmission Date: 20220423
  Serious: Yes (Hospitalization, Other)
  Sender: FDA-Public Use
  Company Number: NL-HQ SPECIALTY-NL-2022INT000039

PATIENT

DRUGS (2)
  1. CISPLATIN [Suspect]
     Active Substance: CISPLATIN
     Indication: Cholangiocarcinoma
     Dosage: 25 MG/M2 (DAY 1 AND 8 EVERY 3 WEEKS)
     Route: 065
  2. GEMCITABINE [Suspect]
     Active Substance: GEMCITABINE
     Indication: Cholangiocarcinoma
     Dosage: 1000 MG/M2 (DAY 1 AND 8, EVERY 3 WEEKS)
     Route: 065

REACTIONS (1)
  - Cholangitis [Unknown]
